FAERS Safety Report 7136122-4 (Version None)
Quarter: 2010Q4

REPORT INFORMATION
  Report Type: 
  Country: None (occurrence: None)
  Receive Date: 20101205
  Receipt Date: 20101119
  Transmission Date: 20110411
  Serious: No
  Sender: FDA-Public Use
  Company Number: US-B.I. PHARMACEUTICALS,INC./RIDGEFIELD-2010-BP-13018BP

PATIENT
  Age: 82 Year
  Sex: Male

DRUGS (6)
  1. FLOMAX [Suspect]
     Indication: BENIGN PROSTATIC HYPERPLASIA
     Dosage: 0.4 MG
     Route: 048
     Dates: start: 20090101, end: 20101119
  2. PLAVIX [Concomitant]
     Indication: ANGIOPLASTY
     Dosage: 75 MG
  3. PLAVIX [Concomitant]
     Indication: STENT PLACEMENT
  4. ATENOLOL [Concomitant]
     Indication: HEART RATE INCREASED
     Dosage: 100 MG
  5. BENAZAPRIL [Concomitant]
     Indication: HYPERTENSION
  6. ZOCOR [Concomitant]
     Indication: BLOOD CHOLESTEROL INCREASED

REACTIONS (2)
  - GYNAECOMASTIA [None]
  - NIPPLE PAIN [None]
